FAERS Safety Report 15154168 (Version 4)
Quarter: 2018Q3

REPORT INFORMATION
  Report Type: Spontaneous
  Country: US (occurrence: US)
  Receive Date: 20180717
  Receipt Date: 20180816
  Transmission Date: 20181010
  Serious: Yes (Life-Threatening, Disabling, Other)
  Sender: FDA-Public Use
  Company Number: US-PFIZER INC-2018285930

PATIENT
  Age: 52 Year
  Sex: Female

DRUGS (4)
  1. GEODON [Interacting]
     Active Substance: ZIPRASIDONE HYDROCHLORIDE\ZIPRASIDONE MESYLATE
     Indication: TREMOR
     Dosage: 60 MG, 2X/DAY
     Route: 048
  2. INDERAL [Interacting]
     Active Substance: PROPRANOLOL HYDROCHLORIDE
     Indication: TREMOR
     Dosage: 30 MG, UNK
  3. GEODON [Suspect]
     Active Substance: ZIPRASIDONE HYDROCHLORIDE\ZIPRASIDONE MESYLATE
     Indication: PSYCHOTIC DISORDER
     Dosage: 160 MG, 1X/DAY (I TAKE 2 80 MG GEODONS IN THE MORNING)
     Route: 048
     Dates: end: 201807
  4. INDERAL [Interacting]
     Active Substance: PROPRANOLOL HYDROCHLORIDE
     Indication: PSYCHOTIC DISORDER
     Dosage: UNK

REACTIONS (4)
  - Hyperhidrosis [Unknown]
  - Drug interaction [Unknown]
  - Tremor [Unknown]
  - Syncope [Recovered/Resolved with Sequelae]

NARRATIVE: CASE EVENT DATE: 20180712
